FAERS Safety Report 10713410 (Version 1)
Quarter: 2015Q1

REPORT INFORMATION
  Report Type: Spontaneous
  Country: US (occurrence: None)
  Receive Date: 20150114
  Receipt Date: 20150114
  Transmission Date: 20150721
  Serious: Yes (Hospitalization)
  Sender: FDA-Public Use
  Company Number: None

PATIENT
  Age: 69 Year
  Sex: Male
  Weight: 108 kg

DRUGS (2)
  1. CLOZAPINE (MYLAN) [Suspect]
     Active Substance: CLOZAPINE
     Indication: SCHIZOPHRENIA, PARANOID TYPE
     Route: 048
     Dates: start: 20120501, end: 20141225
  2. BENZTROPINE [Suspect]
     Active Substance: BENZTROPINE
     Route: 048
     Dates: start: 20131202, end: 20141225

REACTIONS (2)
  - Disease recurrence [None]
  - Ileus [None]

NARRATIVE: CASE EVENT DATE: 20141225
